FAERS Safety Report 23263254 (Version 1)
Quarter: 2023Q4

REPORT INFORMATION
  Report Type: Spontaneous
  Country: US (occurrence: US)
  Receive Date: 20231205
  Receipt Date: 20231205
  Transmission Date: 20240110
  Serious: No
  Sender: FDA-Public Use
  Company Number: US-HALOZYME THERAPEUTICS, INC.-2023-US-TX -04089

PATIENT

DRUGS (1)
  1. XYOSTED [Suspect]
     Active Substance: TESTOSTERONE ENANTHATE
     Indication: Blood testosterone decreased
     Dosage: 75 MILLIGRAM, Q 1 WK FOR 40 MONTHS
     Route: 058
     Dates: end: 202301

REACTIONS (4)
  - Erectile dysfunction [Recovered/Resolved]
  - Weight decreased [Recovered/Resolved]
  - Diabetes mellitus [Recovered/Resolved]
  - Blood testosterone increased [Recovered/Resolved]
